FAERS Safety Report 23214188 (Version 1)
Quarter: 2023Q4

REPORT INFORMATION
  Report Type: Spontaneous
  Country: US (occurrence: None)
  Receive Date: 20231121
  Receipt Date: 20231121
  Transmission Date: 20240109
  Serious: Yes (Other)
  Sender: FDA-Public Use
  Company Number: None

PATIENT
  Age: 53 Year
  Sex: Female

DRUGS (4)
  1. CAPLYTA [Suspect]
     Active Substance: LUMATEPERONE
     Indication: Bipolar disorder
     Dates: start: 20231001, end: 20231019
  2. CAPLYTA [Suspect]
     Active Substance: LUMATEPERONE
     Indication: Depression
  3. FLUVOXAMINE [Concomitant]
     Active Substance: FLUVOXAMINE
  4. LITHIUM [Concomitant]
     Active Substance: LITHIUM

REACTIONS (4)
  - Tardive dyskinesia [None]
  - Mouth ulceration [None]
  - Oral pain [None]
  - Tongue ulceration [None]
